FAERS Safety Report 4634302-0 (Version None)
Quarter: 2005Q2

REPORT INFORMATION
  Report Type: 
  Country: None (occurrence: None)
  Receive Date: 20050413
  Receipt Date: 20050311
  Transmission Date: 20051028
  Serious: Yes (Other)
  Sender: FDA-Public Use
  Company Number: PHEH2005US03041

PATIENT
  Age: 46 Year
  Sex: Female

DRUGS (1)
  1. ELIDEL [Suspect]
     Indication: ECZEMA
     Dosage: 2 TO 3 TUBES OVER 3 YEARS, PRN
     Route: 061
     Dates: start: 20020101

REACTIONS (3)
  - BREAST CANCER [None]
  - MALIGNANT BREAST LUMP REMOVAL [None]
  - RADIOTHERAPY [None]
